FAERS Safety Report 10149072 (Version 2)
Quarter: 2014Q2

REPORT INFORMATION
  Report Type: Spontaneous
  Country: BR (occurrence: BR)
  Receive Date: 20140502
  Receipt Date: 20140613
  Transmission Date: 20141212
  Serious: Yes (Hospitalization)
  Sender: FDA-Public Use
  Company Number: BR-ASTRAZENECA-2014SE29265

PATIENT
  Age: 64 Year
  Sex: Male
  Weight: 88 kg

DRUGS (2)
  1. ANGIPRESS CD (ATENOLOL +CHLORTHALIDONE) [Suspect]
     Indication: HYPERTENSION
     Dosage: DAILY
     Route: 048
  2. CRESTOR [Suspect]
     Indication: BLOOD CHOLESTEROL INCREASED
     Route: 048
     Dates: start: 2009

REACTIONS (4)
  - Myocardial infarction [Recovering/Resolving]
  - Blood cholesterol increased [Unknown]
  - Blood pressure increased [Unknown]
  - Drug ineffective [Unknown]
